FAERS Safety Report 7638753-1 (Version None)
Quarter: 2011Q3

REPORT INFORMATION
  Report Type: 
  Country: None (occurrence: None)
  Receive Date: 20110727
  Receipt Date: 20110719
  Transmission Date: 20111222
  Serious: Yes (Death)
  Sender: FDA-Public Use
  Company Number: DE-ROCHE-779492

PATIENT
  Sex: Female
  Weight: 60 kg

DRUGS (11)
  1. LOPERAMIDE [Concomitant]
     Dosage: FREQUENCY: IF NECESSARY
     Dates: start: 20100825
  2. LEUCOVORIN CALCIUM [Suspect]
     Dosage: FORM: INFUSION. DATE OF LAST DOSE PRIOR TA SAE: 25 AUGUST 2010
     Route: 042
     Dates: start: 20100825, end: 20100908
  3. LEUCOVORIN CALCIUM [Suspect]
     Dosage: UNITS TAKEN FROM PROTOCOL.  LAST DOSE PRIOR TO SAE : 18 MAY 2011
     Route: 042
     Dates: start: 20110518
  4. OXALIPLATIN [Suspect]
     Dosage: FORM: INFUSION, DATE OF LAST DOSE PRIOR TO SAE: 25 AUGUST 2010
     Route: 042
     Dates: start: 20100825, end: 20100908
  5. FLUOROURACIL [Suspect]
     Dosage: UNITS TAKEN FROM PROTOCOL.  LAST DOSE PRIOR TO SAE : 20 MAY 2011
     Route: 042
     Dates: start: 20110518
  6. BEVACIZUMAB [Suspect]
     Dosage: UNITS : TAKEN FROM PROTOCOL. LAST DOSE PRIOR TO SAE : 18 MAY 2011
     Route: 042
     Dates: start: 20110518
  7. BEVACIZUMAB [Suspect]
     Dosage: FORM: INFUSION. DATE OF LAST DOSE PRIOR TO SAE: 25 AUGUST 2010
     Route: 042
     Dates: start: 20100825, end: 20100908
  8. GRANISETRON [Concomitant]
     Dosage: FREQUENCY: IF NECESSARY
     Dates: start: 20100825
  9. IRINOTECAN HCL [Suspect]
     Dosage: FORM: INFUSION, DATE OF LAST DOSE PRIOR TO SAE: 25 AUGUST 2010.
     Route: 042
     Dates: start: 20100825, end: 20100908
  10. FLUOROURACIL [Suspect]
     Dosage: FORM: INFUSION, DATE OF LAST DOSE PRIOR TO SAE: 25 AUGUST 2010.
     Route: 042
     Dates: start: 20100825, end: 20100908
  11. AMPHO MORONAL [Concomitant]
     Dosage: FREQUENCY: IF NECESSARY
     Dates: start: 20100825

REACTIONS (1)
  - INFECTED NEOPLASM [None]
